FAERS Safety Report 19189284 (Version 1)
Quarter: 2021Q2

REPORT INFORMATION
  Report Type: Report from Study
  Country: US (occurrence: US)
  Receive Date: 20210428
  Receipt Date: 20210428
  Transmission Date: 20210717
  Serious: Yes (Other)
  Sender: FDA-Public Use
  Company Number: US-ASTRAZENECA-2021A345708

PATIENT
  Age: 936 Month
  Sex: Female
  Weight: 83.9 kg

DRUGS (1)
  1. CALQUENCE [Suspect]
     Active Substance: ACALABRUTINIB
     Indication: CHRONIC LYMPHOCYTIC LEUKAEMIA
     Route: 048
     Dates: start: 20210401

REACTIONS (6)
  - Drug intolerance [Recovered/Resolved]
  - Headache [Recovered/Resolved]
  - Toxicity to various agents [Recovered/Resolved]
  - Decreased activity [Recovered/Resolved]
  - Nausea [Recovered/Resolved]
  - Intentional product misuse [Unknown]

NARRATIVE: CASE EVENT DATE: 202104
